FAERS Safety Report 7310527-0 (Version None)
Quarter: 2011Q1

REPORT INFORMATION
  Report Type: 
  Country: None (occurrence: None)
  Receive Date: 20110224
  Receipt Date: 20101202
  Transmission Date: 20110831
  Serious: No
  Sender: FDA-Public Use
  Company Number: US-BRISTOL-MYERS SQUIBB COMPANY-15420094

PATIENT
  Age: 72 Year
  Sex: Female

DRUGS (3)
  1. ONGLYZA [Suspect]
     Dosage: 1DF=2.5 UNITS NOT SPECIFIED
  2. SULFONYLUREA [Suspect]
  3. METFORMIN HCL [Suspect]

REACTIONS (1)
  - HYPOGLYCAEMIA [None]
